FAERS Safety Report 4588373-0 (Version None)
Quarter: 2005Q1

REPORT INFORMATION
  Report Type: 
  Country: None (occurrence: None)
  Receive Date: 20050222
  Receipt Date: 20050210
  Transmission Date: 20050727
  Serious: Yes (Hospitalization)
  Sender: FDA-Public Use
  Company Number: JP-BRISTOL-MYERS SQUIBB COMPANY-12868592

PATIENT
  Age: 56 Year
  Sex: Female

DRUGS (3)
  1. GATIFLO TABS 100 MG [Suspect]
     Indication: ATYPICAL MYCOBACTERIAL INFECTION
     Dosage: ONGOING 2/12/03 TO 4/12/03 AND 9/30/03 TO 10/15/03.
     Route: 048
     Dates: start: 20030212, end: 20031015
  2. CLARITH [Concomitant]
     Indication: ATYPICAL MYCOBACTERIAL INFECTION
     Dosage: ONGOING 1/29/03 TO 5/14/03 AND 9/30/03 TO 2/26/04
     Route: 048
     Dates: start: 20030129, end: 20040226
  3. TIENAM [Concomitant]
     Route: 042
     Dates: start: 20030930, end: 20031013

REACTIONS (2)
  - DIABETES MELLITUS [None]
  - HYPERGLYCAEMIA [None]
